FAERS Safety Report 20583214 (Version 4)
Quarter: 2023Q2

REPORT INFORMATION
  Report Type: Report from Study
  Country: KR (occurrence: KR)
  Receive Date: 20220311
  Receipt Date: 20230424
  Transmission Date: 20230721
  Serious: Yes (Death, Other)
  Sender: FDA-Public Use
  Company Number: KR-GLAXOSMITHKLINE-KR2022GSK044625

PATIENT
  Age: 75 Year
  Sex: Male
  Weight: 81 kg

DRUGS (15)
  1. FLUTICASONE FUROATE\UMECLIDINIUM BROMIDE\VILANTEROL TRIFENATATE [Suspect]
     Active Substance: FLUTICASONE FUROATE\UMECLIDINIUM BROMIDE\VILANTEROL TRIFENATATE
     Indication: Chronic obstructive pulmonary disease
     Dosage: UNK UNK, SINGLE
     Route: 055
     Dates: start: 20211028, end: 20220304
  2. DOXOFYLLINE [Concomitant]
     Active Substance: DOXOFYLLINE
     Indication: Chronic obstructive pulmonary disease
     Dosage: 400 MG, BID
     Route: 048
     Dates: start: 20210930
  3. DOXOFYLLINE [Concomitant]
     Active Substance: DOXOFYLLINE
     Dosage: 1, BID
     Route: 048
     Dates: start: 20210617
  4. RECOMID [Concomitant]
     Indication: Pain prophylaxis
     Dosage: 100 MG, BID
     Route: 048
     Dates: start: 20210701
  5. RECOMID [Concomitant]
     Dosage: 100 MG, BID
     Route: 048
     Dates: start: 20210930
  6. ERDOSTEINE [Concomitant]
     Active Substance: ERDOSTEINE
     Indication: Productive cough
     Dosage: 300 MG, BID
     Route: 048
     Dates: start: 20210930
  7. ERDOSTEINE [Concomitant]
     Active Substance: ERDOSTEINE
     Dosage: 300 MG, BID
     Route: 048
     Dates: start: 20201111
  8. NAFTOPIDIL [Concomitant]
     Active Substance: NAFTOPIDIL
     Indication: Benign prostatic hyperplasia
     Dosage: 75 MG, QD
     Route: 048
     Dates: start: 20210604
  9. MIRABEGRON [Concomitant]
     Active Substance: MIRABEGRON
     Indication: Benign prostatic hyperplasia
     Dosage: 50 MG, QD
     Route: 048
     Dates: start: 20211231
  10. PROPRANOLOL HYDROCHLORIDE [Concomitant]
     Active Substance: PROPRANOLOL HYDROCHLORIDE
     Indication: Depression
     Dosage: 10 MG, BID
     Route: 048
     Dates: start: 20180306
  11. SEROQUEL [Concomitant]
     Active Substance: QUETIAPINE FUMARATE
     Indication: Dementia Alzheimer^s type
     Dosage: 0.5 MG, QD
     Route: 048
     Dates: start: 20210917
  12. ALPRAZOLAM [Concomitant]
     Active Substance: ALPRAZOLAM
     Indication: Dementia Alzheimer^s type
     Dosage: 0.5 MG, BID
     Route: 048
     Dates: start: 20210917
  13. RENALMIN [Concomitant]
     Indication: Vitamin supplementation
     Dosage: 1 SINGLE DOSE, QD
     Route: 048
     Dates: start: 20210617
  14. ARICEPT [Concomitant]
     Active Substance: DONEPEZIL HYDROCHLORIDE
     Indication: Dementia Alzheimer^s type
     Dosage: 5 MG, QD
     Route: 048
     Dates: start: 20210701
  15. BRINTELLIX [Concomitant]
     Active Substance: VORTIOXETINE HYDROBROMIDE
     Indication: Depression
     Dosage: 5 MG, QD
     Route: 048
     Dates: start: 20220203

REACTIONS (1)
  - COVID-19 pneumonia [Fatal]

NARRATIVE: CASE EVENT DATE: 20220304
